FAERS Safety Report 4874172-9 (Version None)
Quarter: 2006Q1

REPORT INFORMATION
  Report Type: 
  Country: None (occurrence: None)
  Receive Date: 20060106
  Receipt Date: 20060102
  Transmission Date: 20060701
  Serious: Yes (Death, Other)
  Sender: FDA-Public Use
  Company Number: PHBS2006ES00457

PATIENT
  Age: 58 Year
  Sex: Female

DRUGS (4)
  1. CYCLOSPORINE [Suspect]
     Indication: LUNG TRANSPLANT
     Route: 065
     Dates: start: 19950401
  2. AZATHIOPRINE [Suspect]
     Indication: LUNG TRANSPLANT
     Dosage: UNK, UNK
     Route: 065
     Dates: start: 19950401
  3. CORTICOSTEROIDS FOR SYSTEMIC USE [Suspect]
     Indication: LUNG TRANSPLANT
     Route: 065
     Dates: start: 19950401
  4. GANCICLOVIR [Concomitant]

REACTIONS (10)
  - ABDOMINAL PAIN [None]
  - ANAEMIA [None]
  - DOUGLAS' POUCH MASS [None]
  - EPSTEIN-BARR VIRUS INFECTION [None]
  - LYMPHOPROLIFERATIVE DISORDER [None]
  - METASTASES TO PERITONEUM [None]
  - OVARIAN MASS [None]
  - PNEUMONIA [None]
  - PYREXIA [None]
  - SURGERY [None]
